FAERS Safety Report 17603669 (Version 2)
Quarter: 2020Q2

REPORT INFORMATION
  Report Type: Spontaneous
  Country: US (occurrence: US)
  Receive Date: 20200331
  Receipt Date: 20200406
  Transmission Date: 20200713
  Serious: Yes (Hospitalization, Other)
  Sender: FDA-Public Use
  Company Number: US-AUROBINDO-AUR-APL-2020-015606

PATIENT
  Age: 69 Year
  Sex: Male

DRUGS (1)
  1. QUETIAPINE. [Suspect]
     Active Substance: QUETIAPINE
     Indication: DELIRIUM
     Dosage: UNK
     Route: 065

REACTIONS (3)
  - Muscle hypertrophy [Recovering/Resolving]
  - Dystonia [Recovering/Resolving]
  - Torticollis [Recovering/Resolving]
